FAERS Safety Report 20497676 (Version 1)
Quarter: 2022Q1

REPORT INFORMATION
  Report Type: Spontaneous
  Country: JP (occurrence: JP)
  Receive Date: 20220222
  Receipt Date: 20220222
  Transmission Date: 20220423
  Serious: Yes (Death, Life-Threatening, Hospitalization, Other)
  Sender: FDA-Public Use
  Company Number: JP-Accord-254622

PATIENT
  Age: 85 Year
  Sex: Female

DRUGS (2)
  1. METHOTREXATE [Suspect]
     Active Substance: METHOTREXATE
     Indication: Rheumatoid arthritis
     Dosage: FOR OVER A YEAR
  2. TACROLIMUS [Suspect]
     Active Substance: TACROLIMUS
     Indication: Rheumatoid arthritis
     Dosage: FOR OVER A YEAR

REACTIONS (7)
  - Epstein-Barr virus associated lymphoproliferative disorder [Fatal]
  - Cellulitis [Fatal]
  - Staphylococcal infection [Fatal]
  - Immune reconstitution inflammatory syndrome [Fatal]
  - Skin ulcer [Fatal]
  - Cutaneous tuberculosis [Fatal]
  - Diffuse large B-cell lymphoma [Fatal]
